FAERS Safety Report 7513436-7 (Version None)
Quarter: 2011Q2

REPORT INFORMATION
  Report Type: 
  Country: None (occurrence: None)
  Receive Date: 20110531
  Receipt Date: 20101228
  Transmission Date: 20111010
  Serious: Yes (Other)
  Sender: FDA-Public Use
  Company Number: US-BAYER-201033388NA

PATIENT
  Age: 37 Year
  Sex: Female
  Weight: 92.517 kg

DRUGS (18)
  1. DROSPIRENONE AND ETHINYL ESTRADIOL [Suspect]
     Indication: CONTRACEPTION
  2. ABILIFY [Concomitant]
     Dosage: 5 MG, QD
     Route: 048
  3. DROSPIRENONE AND ETHINYL ESTRADIOL [Suspect]
     Indication: MENSTRUATION IRREGULAR
     Dosage: UNK
     Dates: start: 20080101, end: 20091001
  4. LEVOXYL [Concomitant]
     Indication: HYPOTHYROIDISM
     Dosage: 200 MCG/24HR, QD
     Route: 048
  5. YASMIN [Suspect]
     Indication: PREMENSTRUAL SYNDROME
  6. DROSPIRENONE AND ETHINYL ESTRADIOL [Suspect]
     Indication: AFFECT LABILITY
  7. NEXIUM [Concomitant]
  8. MULTI-VITAMIN [Concomitant]
  9. YASMIN [Suspect]
     Indication: AFFECT LABILITY
  10. ZOLOFT [Concomitant]
     Dosage: 100 MG, QD
     Route: 048
  11. DEPAKOTE [Concomitant]
     Dosage: 250 MG, UNK
     Route: 048
  12. YASMIN [Suspect]
     Indication: CONTRACEPTION
  13. DROSPIRENONE AND ETHINYL ESTRADIOL [Suspect]
     Indication: PREMENSTRUAL SYNDROME
  14. LEVOTHYROXINE SODIUM [Concomitant]
     Route: 048
  15. SYNTHROID [Concomitant]
  16. YASMIN [Suspect]
     Indication: MENSTRUATION IRREGULAR
     Dosage: UNK UNK, UNK
     Route: 048
     Dates: start: 20060101, end: 20080101
  17. LAMOTRIGINE [Concomitant]
     Dosage: 25 MG, UNK
     Route: 048
  18. OXYCODONE HCL [Concomitant]
     Indication: PAIN
     Dosage: UNK UNK, PRN

REACTIONS (7)
  - ABDOMINAL PAIN [None]
  - CHOLELITHIASIS [None]
  - ABDOMINAL PAIN UPPER [None]
  - BILIARY COLIC [None]
  - CHOLECYSTITIS CHRONIC [None]
  - GASTRITIS [None]
  - NAUSEA [None]
